FAERS Safety Report 19438262 (Version 1)
Quarter: 2021Q2

REPORT INFORMATION
  Report Type: Spontaneous
  Country: GB (occurrence: GB)
  Receive Date: 20210619
  Receipt Date: 20210619
  Transmission Date: 20210717
  Serious: Yes (Hospitalization)
  Sender: FDA-Public Use
  Company Number: GB-ACCORD-228509

PATIENT
  Age: 67 Year
  Sex: Female

DRUGS (10)
  1. COLECALCIFEROL [Concomitant]
     Active Substance: CHOLECALCIFEROL
     Indication: ILL-DEFINED DISORDER
  2. IRON [Concomitant]
     Active Substance: IRON
     Indication: ILL-DEFINED DISORDER
  3. DOXAZOSIN [Concomitant]
     Active Substance: DOXAZOSIN MESYLATE
     Indication: ILL-DEFINED DISORDER
  4. EZETIMIBE. [Concomitant]
     Active Substance: EZETIMIBE
     Indication: ILL-DEFINED DISORDER
  5. LINAGLIPTIN [Concomitant]
     Active Substance: LINAGLIPTIN
     Indication: ILL-DEFINED DISORDER
  6. AMLODIPINE [Concomitant]
     Active Substance: AMLODIPINE BESYLATE
     Indication: ILL-DEFINED DISORDER
  7. RAMIPRIL. [Suspect]
     Active Substance: RAMIPRIL
     Indication: ILL-DEFINED DISORDER
     Dosage: 5 MG OD
     Dates: start: 20210311, end: 20210318
  8. HUMALOG MIX50/50 [Concomitant]
     Active Substance: INSULIN LISPRO
     Indication: ILL-DEFINED DISORDER
  9. MOVICOL [Concomitant]
     Active Substance: POLYETHYLENE GLYCOL 3350\POTASSIUM CHLORIDE\SODIUM BICARBONATE\SODIUM CHLORIDE
     Indication: ILL-DEFINED DISORDER
  10. FENOFIBRATE. [Concomitant]
     Active Substance: FENOFIBRATE
     Indication: ILL-DEFINED DISORDER

REACTIONS (1)
  - Acute kidney injury [Unknown]

NARRATIVE: CASE EVENT DATE: 20210318
